FAERS Safety Report 19954624 (Version 1)
Quarter: 2021Q4

REPORT INFORMATION
  Report Type: Report from Study
  Country: US (occurrence: US)
  Receive Date: 20211014
  Receipt Date: 20211014
  Transmission Date: 20220303
  Serious: Yes (Other)
  Sender: FDA-Public Use
  Company Number: US-ROCHE-2932090

PATIENT
  Age: 72 Year

DRUGS (1)
  1. ALTEPLASE [Suspect]
     Active Substance: ALTEPLASE
     Indication: Ischaemic stroke
     Route: 065

REACTIONS (5)
  - Hyperkalaemia [Recovered/Resolved]
  - Hypoxia [Recovered/Resolved]
  - Cardiac failure congestive [Not Recovered/Not Resolved]
  - Acute kidney injury [Recovered/Resolved]
  - Rib fracture [Recovered/Resolved]

NARRATIVE: CASE EVENT DATE: 20211008
